FAERS Safety Report 9161333 (Version 1)
Quarter: 2013Q1

REPORT INFORMATION
  Report Type: Spontaneous
  Country: US (occurrence: US)
  Receive Date: 20130313
  Receipt Date: 20130313
  Transmission Date: 20140127
  Serious: Yes (Hospitalization, Other)
  Sender: FDA-Public Use
  Company Number: US-WATSON-2013-03617

PATIENT
  Age: 30 None
  Sex: Female
  Weight: 59 kg

DRUGS (2)
  1. LOW-OGESTREL 0.3/30-28 [Suspect]
     Indication: CONTRACEPTION
     Dosage: ONE TABLET DAILY
     Route: 048
     Dates: start: 20130131, end: 20130206
  2. LOW-OGESTREL [Suspect]
     Dosage: ONE TABLET DAILY
     Route: 048
     Dates: start: 20121031, end: 20130130

REACTIONS (10)
  - Grand mal convulsion [Recovered/Resolved]
  - Convulsion [Recovered/Resolved]
  - Syncope [Recovered/Resolved]
  - Loss of consciousness [Recovered/Resolved]
  - Constipation [Recovered/Resolved]
  - Panic attack [Recovered/Resolved]
  - Abdominal pain [Recovered/Resolved]
  - Weight increased [Recovered/Resolved]
  - Dizziness [Recovered/Resolved]
  - Nausea [Recovered/Resolved]
